FAERS Safety Report 7756556-4 (Version None)
Quarter: 2011Q3

REPORT INFORMATION
  Report Type: 
  Country: None (occurrence: None)
  Receive Date: 20110916
  Receipt Date: 20110906
  Transmission Date: 20111222
  Serious: Yes (Other)
  Sender: FDA-Public Use
  Company Number: US-CELGENEUS-163-21880-11080357

PATIENT
  Sex: Male

DRUGS (38)
  1. PANTOPRAZOLE [Concomitant]
     Dosage: 20 MILLIGRAM
     Route: 048
     Dates: start: 20110720
  2. METRONIDAZOLE [Concomitant]
     Dosage: 250 MILLIGRAM
     Route: 048
     Dates: end: 20070711
  3. NEXIUM [Concomitant]
     Dosage: 40 MILLIGRAM
     Route: 048
     Dates: start: 20090327, end: 20090327
  4. AMOXICILLIN [Concomitant]
     Dosage: 500 MILLIGRAM
     Route: 048
     Dates: start: 20071011, end: 20071114
  5. CIPROFLOXACIN [Concomitant]
     Dosage: 500 MILLIGRAM
     Route: 048
  6. LIPITOR [Concomitant]
     Dosage: 40 MILLIGRAM
     Route: 048
     Dates: start: 20110720
  7. DOXYCYCLINE HYCLATE [Concomitant]
     Dosage: 100 MILLIGRAM
     Route: 065
     Dates: start: 20110616
  8. CALCIUM + D [Concomitant]
     Dosage: 600 MILLIGRAM
     Route: 048
     Dates: start: 20110503, end: 20110531
  9. CEPHALEXIN [Concomitant]
     Dosage: 500 MILLIGRAM
     Route: 048
     Dates: start: 20100512
  10. HEPARIN [Concomitant]
     Dosage: 5000 UNITS
     Route: 041
     Dates: start: 20110503, end: 20110531
  11. FOLIC ACID [Concomitant]
     Dosage: 200 MICROGRAM
     Route: 048
     Dates: start: 20100208
  12. LEVAQUIN [Concomitant]
     Dosage: 500 MILLIGRAM
     Route: 048
  13. POTASSIUM [Concomitant]
     Dosage: 75 MILLIGRAM
     Route: 048
  14. MEGESTROL ACETATE [Concomitant]
     Dosage: 40 MILLIGRAM
     Route: 065
     Dates: start: 20110525
  15. ERYTHROMYCIN [Concomitant]
     Route: 047
     Dates: start: 20110831
  16. PANDEL [Concomitant]
     Dosage: 45 GRAM
     Route: 061
     Dates: start: 20100515
  17. HYDROCODONE BITARTRATE AND ACETAMINOPHEN [Concomitant]
     Dosage: 5MG/500
     Route: 065
     Dates: start: 20100407
  18. STOOL SOFTENER [Concomitant]
     Dosage: 100 MILLIGRAM
     Route: 048
     Dates: end: 20100108
  19. ASPIRIN [Concomitant]
     Dosage: 81 MILLIGRAM
     Route: 048
     Dates: end: 20100801
  20. REVLIMID [Suspect]
     Indication: MULTIPLE MYELOMA
     Dosage: 10 MILLIGRAM
     Route: 048
     Dates: start: 20080402
  21. PREDNISONE [Concomitant]
     Dosage: 5 MILLIGRAM
     Route: 048
     Dates: start: 20110802
  22. VITAMIN D [Concomitant]
     Dosage: 50000 IU (INTERNATIONAL UNIT)
     Route: 048
     Dates: start: 20110616
  23. CHLORHEXIDINE GLUCONATE [Concomitant]
     Route: 048
     Dates: start: 20110311
  24. ALLOPURINOL [Concomitant]
     Dosage: 100 MILLIGRAM
     Route: 048
     Dates: start: 20101115
  25. METAMUCIL-2 [Concomitant]
     Dosage: 48.57%
     Route: 065
     Dates: start: 20100208
  26. NYSTOP [Concomitant]
     Dosage: 100000 U/GM
     Route: 061
     Dates: start: 20110830
  27. POTASSIUM CHLORIDE [Concomitant]
     Dosage: 10 PERCENT
     Route: 048
     Dates: start: 20110308
  28. NITROGLYCERIN [Concomitant]
     Dosage: .4 MILLIGRAM
     Route: 060
     Dates: start: 20060725
  29. FLUDROCORTISONE ACETATE [Concomitant]
     Dosage: .1 MILLIGRAM
     Route: 048
     Dates: start: 20100806
  30. NIACINAMIDE [Concomitant]
     Dosage: 100 MILLIGRAM
     Route: 048
     Dates: start: 20100208
  31. PREDNISONE [Concomitant]
     Dosage: 1 MILLIGRAM
     Route: 048
     Dates: end: 20090828
  32. PROTONIX [Concomitant]
     Dosage: 20 MILLIGRAM
     Route: 048
     Dates: start: 20100208
  33. MELATONIN [Concomitant]
     Dosage: 3 MILLIGRAM
     Route: 048
  34. REVLIMID [Suspect]
     Indication: MYELODYSPLASTIC SYNDROME
  35. METOPROLOL TARTRATE [Concomitant]
     Dosage: 25 MILLIGRAM
     Route: 048
     Dates: start: 20100208
  36. PLAVIX [Concomitant]
     Dosage: 75 MILLIGRAM
     Route: 048
     Dates: start: 20100208
  37. ISOSORBIDE MONONITRATE [Concomitant]
     Dosage: 30 MILLIGRAM
     Route: 048
     Dates: start: 20091221, end: 20100208
  38. FUROSEMIDE [Concomitant]
     Dosage: 20 MILLIGRAM
     Route: 048
     Dates: start: 20090304, end: 20100109

REACTIONS (2)
  - TACHYCARDIA [None]
  - BLOOD POTASSIUM DECREASED [None]
